FAERS Safety Report 4523349-0 (Version None)
Quarter: 2004Q4

REPORT INFORMATION
  Report Type: 
  Country: None (occurrence: None)
  Receive Date: 20041210
  Receipt Date: 20041013
  Transmission Date: 20050328
  Serious: Yes (Death, Other)
  Sender: FDA-Public Use
  Company Number: PHEH2004US11013

PATIENT
  Age: 41 Year
  Sex: Female

DRUGS (1)
  1. TEGRETOL [Suspect]
     Indication: BIPOLAR DISORDER
     Route: 048
     Dates: start: 20020101

REACTIONS (2)
  - CARDIOPULMONARY FAILURE [None]
  - WHITE BLOOD CELL COUNT DECREASED [None]
